FAERS Safety Report 17726350 (Version 1)
Quarter: 2020Q2

REPORT INFORMATION
  Report Type: Spontaneous
  Country: US (occurrence: US)
  Receive Date: 20200430
  Receipt Date: 20200430
  Transmission Date: 20200714
  Serious: No
  Sender: FDA-Public Use
  Company Number: US-STRIDES ARCOLAB LIMITED-2020SP003904

PATIENT
  Age: 14 Year
  Sex: Male

DRUGS (2)
  1. CYPROHEPTADINE. [Suspect]
     Active Substance: CYPROHEPTADINE
     Dosage: 2 MILLIGRAM, EVERY 2 HRS
     Route: 048
  2. CYPROHEPTADINE. [Suspect]
     Active Substance: CYPROHEPTADINE
     Indication: SEROTONIN SYNDROME
     Dosage: 4 MILLIGRAM
     Route: 048

REACTIONS (2)
  - Somnolence [Unknown]
  - Off label use [Unknown]
